FAERS Safety Report 16155510 (Version 1)
Quarter: 2019Q2

REPORT INFORMATION
  Report Type: Report from Study
  Country: GB (occurrence: GB)
  Receive Date: 20190404
  Receipt Date: 20190404
  Transmission Date: 20190711
  Serious: Yes (Death)
  Sender: FDA-Public Use
  Company Number: GB-ROCHE-2293560

PATIENT
  Sex: Female
  Weight: 83 kg

DRUGS (1)
  1. RITUXIMAB. [Suspect]
     Active Substance: RITUXIMAB
     Indication: RHEUMATOID ARTHRITIS
     Route: 042
     Dates: end: 20160318

REACTIONS (1)
  - Death [Fatal]

NARRATIVE: CASE EVENT DATE: 20180814
